FAERS Safety Report 6846167-7 (Version None)
Quarter: 2010Q3

REPORT INFORMATION
  Report Type: 
  Country: None (occurrence: None)
  Receive Date: 20100715
  Receipt Date: 20070911
  Transmission Date: 20110219
  Serious: No
  Sender: FDA-Public Use
  Company Number: US-PFIZER INC-2007078052

PATIENT

DRUGS (1)
  1. CHANTIX [Suspect]

REACTIONS (2)
  - SKIN ODOUR ABNORMAL [None]
  - WEIGHT INCREASED [None]
